FAERS Safety Report 7295183-2 (Version None)
Quarter: 2011Q1

REPORT INFORMATION
  Report Type: 
  Country: None (occurrence: None)
  Receive Date: 20110216
  Receipt Date: 20101118
  Transmission Date: 20110831
  Serious: No
  Sender: FDA-Public Use
  Company Number: A0892020A

PATIENT
  Age: 70 Year
  Sex: Female

DRUGS (8)
  1. TYLENOL [Concomitant]
  2. ASPIRIN [Concomitant]
  3. VOTRIENT [Suspect]
     Indication: RENAL CANCER
     Dosage: 800MG PER DAY
     Route: 048
     Dates: start: 20101021, end: 20101115
  4. TRAMADOL [Concomitant]
  5. CENTRUM MULTI-VITAMIN [Concomitant]
  6. FERROUS SULFATE TAB [Concomitant]
  7. PANTOPRAZOLE [Concomitant]
  8. EXFORGE [Concomitant]

REACTIONS (8)
  - ABDOMINAL PAIN [None]
  - FLATULENCE [None]
  - GINGIVAL PAIN [None]
  - NAUSEA [None]
  - LACRIMATION INCREASED [None]
  - ALOPECIA [None]
  - VOMITING [None]
  - HYPERAESTHESIA [None]
